FAERS Safety Report 9572324 (Version 1)
Quarter: 2013Q4

REPORT INFORMATION
  Report Type: Spontaneous
  Country: CH (occurrence: CH)
  Receive Date: 20131001
  Receipt Date: 20131001
  Transmission Date: 20140711
  Serious: Yes (Hospitalization)
  Sender: FDA-Public Use
  Company Number: PHHY2013CH108055

PATIENT
  Age: 2 Year
  Sex: Female

DRUGS (2)
  1. EXJADE [Suspect]
     Indication: THALASSAEMIA BETA
     Dosage: 250 MG, QD
     Route: 048
     Dates: start: 20100928, end: 20110922
  2. EXJADE [Suspect]
     Dosage: 250 MG, QD
     Route: 048
     Dates: start: 20111114

REACTIONS (6)
  - Metabolic acidosis [Unknown]
  - Vomiting [Unknown]
  - Liver injury [Recovered/Resolved]
  - Hepatocellular injury [Unknown]
  - Pyrexia [Recovered/Resolved]
  - Dehydration [Unknown]
